FAERS Safety Report 16305600 (Version 3)
Quarter: 2019Q2

REPORT INFORMATION
  Report Type: Spontaneous
  Country: US (occurrence: US)
  Receive Date: 20190513
  Receipt Date: 20190627
  Transmission Date: 20190711
  Serious: No
  Sender: FDA-Public Use
  Company Number: US-PFIZER INC-2019199009

PATIENT
  Sex: Female
  Weight: 87 kg

DRUGS (2)
  1. SPIRONOLACTONE. [Suspect]
     Active Substance: SPIRONOLACTONE
     Indication: STEROID THERAPY
     Dosage: 200 MG, 1X/DAY
  2. SPIRONOLACTONE. [Suspect]
     Active Substance: SPIRONOLACTONE
     Indication: BLOOD TESTOSTERONE INCREASED
     Dosage: 100 MG, UNK
     Route: 048
     Dates: start: 201501

REACTIONS (6)
  - Product use in unapproved indication [Unknown]
  - Off label use [Unknown]
  - Pollakiuria [Recovered/Resolved]
  - Nocturia [Unknown]
  - Polyuria [Unknown]
  - Sleep disorder [Recovered/Resolved]
